FAERS Safety Report 15593131 (Version 1)
Quarter: 2018Q4

REPORT INFORMATION
  Report Type: Spontaneous
  Country: US (occurrence: US)
  Receive Date: 20181107
  Receipt Date: 20181107
  Transmission Date: 20190205
  Serious: Yes (Life-Threatening, Hospitalization)
  Sender: FDA-Public Use
  Company Number: None

PATIENT
  Age: 72 Year
  Sex: Female

DRUGS (1)
  1. METFORMIN [Suspect]
     Active Substance: METFORMIN HYDROCHLORIDE

REACTIONS (9)
  - Lactic acidosis [None]
  - Mental status changes [None]
  - Acute kidney injury [None]
  - Aspartate aminotransferase increased [None]
  - Alanine aminotransferase increased [None]
  - Sepsis [None]
  - Ischaemic hepatitis [None]
  - Urinary tract infection [None]
  - Rhabdomyolysis [None]

NARRATIVE: CASE EVENT DATE: 20180807
